FAERS Safety Report 8048287-0 (Version None)
Quarter: 2012Q1

REPORT INFORMATION
  Report Type: 
  Country: None (occurrence: None)
  Receive Date: 20120117
  Receipt Date: 20120113
  Transmission Date: 20120608
  Serious: No
  Sender: FDA-Public Use
  Company Number: US-PFIZER INC-2012011076

PATIENT
  Sex: Female
  Weight: 58.957 kg

DRUGS (5)
  1. CYMBALTA [Concomitant]
     Indication: DEPRESSION
     Dosage: 30 MG, DAILY
  2. GABAPENTIN [Concomitant]
     Indication: DEPRESSION
     Dosage: 900 MG, DAILY
     Route: 048
  3. CHANTIX [Suspect]
     Indication: SMOKING CESSATION THERAPY
     Dosage: 0.5 MG, DAILY
     Route: 048
     Dates: start: 20120101, end: 20120101
  4. CHANTIX [Suspect]
     Dosage: UNK
     Route: 048
     Dates: start: 20120101
  5. SEROQUEL [Concomitant]
     Indication: SLEEP DISORDER
     Dosage: 10 MG, DAILY

REACTIONS (1)
  - NAUSEA [None]
